FAERS Safety Report 7740339-5 (Version None)
Quarter: 2011Q3

REPORT INFORMATION
  Report Type: 
  Country: None (occurrence: None)
  Receive Date: 20110909
  Receipt Date: 20110909
  Transmission Date: 20111222
  Serious: Yes (Other)
  Sender: FDA-Public Use
  Company Number: CA-ABBOTT-10P-028-0655475-00

PATIENT
  Sex: Female
  Weight: 65.83 kg

DRUGS (9)
  1. HUMIRA [Suspect]
     Indication: RHEUMATOID ARTHRITIS
     Route: 058
     Dates: start: 20100619, end: 20100705
  2. ARTHROTEC [Concomitant]
     Indication: RHEUMATOID ARTHRITIS
     Route: 048
  3. ZOPICLONE [Concomitant]
     Indication: INSOMNIA
     Route: 048
  4. HUMIRA [Suspect]
     Route: 058
     Dates: start: 20101101, end: 20110201
  5. PLAQUENIL [Concomitant]
     Indication: RHEUMATOID ARTHRITIS
  6. CEPPRA [Concomitant]
     Indication: RHEUMATOID ARTHRITIS
     Route: 048
  7. ATIVAN [Concomitant]
     Indication: PARTIAL SEIZURES
     Route: 048
  8. CLOBAZAM [Concomitant]
     Indication: PARTIAL SEIZURES
  9. LEFLUNOMIDE [Concomitant]
     Indication: RHEUMATOID ARTHRITIS
     Dosage: 10-20 MG DAILY
     Route: 048

REACTIONS (5)
  - BRAIN NEOPLASM [None]
  - DEMYELINATION [None]
  - CONVULSION [None]
  - ASTROCYTOMA [None]
  - RADIATION INJURY [None]
